FAERS Safety Report 5633760-2 (Version None)
Quarter: 2008Q1

REPORT INFORMATION
  Report Type: 
  Country: None (occurrence: None)
  Receive Date: 20080219
  Receipt Date: 20080211
  Transmission Date: 20080703
  Serious: Yes (Other)
  Sender: FDA-Public Use
  Company Number: CHNY2008SE00793

PATIENT
  Age: 41 Year
  Sex: 0

DRUGS (1)
  1. NICOTINE [Suspect]
     Indication: SMOKING CESSATION THERAPY
     Dosage: CHEWED; 12-20 GUMAS A DAY DIVIDED IN HALVES, CHEWED
     Dates: start: 20020201

REACTIONS (1)
  - DEPENDENCE [None]
